FAERS Safety Report 25022544 (Version 1)
Quarter: 2025Q1

REPORT INFORMATION
  Report Type: Spontaneous
  Country: US (occurrence: US)
  Receive Date: 20250228
  Receipt Date: 20250228
  Transmission Date: 20250409
  Serious: No
  Sender: JOHNSON AND JOHNSON
  Company Number: US-JNJFOC-20250254181

PATIENT
  Sex: Female
  Weight: 57 kg

DRUGS (7)
  1. DARATUMUMAB\HYALURONIDASE-FIHJ [Suspect]
     Active Substance: DARATUMUMAB\HYALURONIDASE-FIHJ
     Indication: Product used for unknown indication
     Route: 065
  2. CHOLECALCIFEROL [Concomitant]
     Active Substance: CHOLECALCIFEROL
     Indication: Vitamin D deficiency
     Route: 048
     Dates: start: 20240126
  3. ESTRADIOL [Concomitant]
     Active Substance: ESTRADIOL
     Indication: In vitro fertilisation
  4. PROGESTERONE [Concomitant]
     Active Substance: PROGESTERONE
     Indication: In vitro fertilisation
     Dosage: 1.5 CC
     Dates: start: 20240308, end: 20240626
  5. ESTRACE [Concomitant]
     Active Substance: ESTRADIOL
     Indication: In vitro fertilisation
     Route: 048
     Dates: start: 20240523, end: 20240626
  6. DEXAMETHASONE [Concomitant]
     Active Substance: DEXAMETHASONE
     Indication: In vitro fertilisation
     Route: 048
     Dates: start: 20240311, end: 20240526
  7. LEVOTHYROXINE [Concomitant]
     Active Substance: LEVOTHYROXINE
     Indication: Hypothyroidism
     Route: 048
     Dates: start: 20240430

REACTIONS (1)
  - Paternal exposure during pregnancy [Unknown]
